FAERS Safety Report 9789007 (Version 1)
Quarter: 2013Q4

REPORT INFORMATION
  Report Type: Spontaneous
  Country: US (occurrence: US)
  Receive Date: 20131230
  Receipt Date: 20131230
  Transmission Date: 20140711
  Serious: No
  Sender: FDA-Public Use
  Company Number: US-ASTRAZENECA-2013SE78419

PATIENT
  Age: 84 Year
  Sex: Male

DRUGS (11)
  1. BRILINTA [Suspect]
     Indication: CORONARY ARTERIAL STENT INSERTION
     Route: 048
  2. ASPIRIN [Concomitant]
     Indication: PROPHYLAXIS
     Route: 048
  3. ATORVASTATIN [Concomitant]
     Route: 048
  4. DESMOPRESSIN [Concomitant]
     Route: 048
  5. DICLOFENAC SODIUM [Concomitant]
     Route: 048
  6. LEXAPRO [Concomitant]
     Route: 048
  7. METOPROLOL TARTRATE [Concomitant]
     Route: 048
  8. MULTIVITAMIN [Concomitant]
     Indication: SUPPLEMENTATION THERAPY
     Route: 048
  9. SIMPLY SLEEP [Concomitant]
     Indication: SLEEP DISORDER
     Route: 048
  10. TYLENOL EXTRA STRENGTH [Concomitant]
     Route: 048
  11. VASOTEC [Concomitant]
     Route: 048

REACTIONS (4)
  - Vision blurred [Unknown]
  - Gait disturbance [Unknown]
  - Dyspnoea [Unknown]
  - Dizziness [Unknown]
